FAERS Safety Report 17435094 (Version 1)
Quarter: 2020Q1

REPORT INFORMATION
  Report Type: Spontaneous
  Country: NL (occurrence: NL)
  Receive Date: 20200219
  Receipt Date: 20200219
  Transmission Date: 20200409
  Serious: Yes (Hospitalization)
  Sender: FDA-Public Use
  Company Number: NL-MYLANLABS-2020M1016798

PATIENT
  Sex: Male
  Weight: 87 kg

DRUGS (5)
  1. TIVICAY [Concomitant]
     Active Substance: DOLUTEGRAVIR SODIUM
     Dosage: TABLET, 50 MG (MILLIGRAM)
  2. KALETRA [Concomitant]
     Active Substance: LOPINAVIR\RITONAVIR
     Dosage: TABLET, 200/50 MG (MILLIGRAM)
  3. RITONAVIR. [Concomitant]
     Active Substance: RITONAVIR
     Dosage: TABLET, 100 MG (MILLIGRAM)
  4. PREZISTA [Concomitant]
     Active Substance: DARUNAVIR ETHANOLATE
     Dosage: TABLET, 800 MG (MILLIGRAM)
  5. ABACAVIR SULFATE/LAMIVUDINE/ZIDOVUDINE [Suspect]
     Active Substance: ABACAVIR SULFATE\LAMIVUDINE\ZIDOVUDINE
     Indication: HIV INFECTION
     Dosage: TABLET, 300/150/300 MG (MILLIGRAM), 1 KEER PER DAG, 1 (1DF, QD)
     Dates: start: 20181206

REACTIONS (3)
  - Lipids increased [Unknown]
  - Anaemia [Unknown]
  - Blood glucose increased [Unknown]
